FAERS Safety Report 4440690-0 (Version None)
Quarter: 2004Q3

REPORT INFORMATION
  Report Type: 
  Country: None (occurrence: None)
  Receive Date: 20040903
  Receipt Date: 20040826
  Transmission Date: 20050211
  Serious: Yes (Other)
  Sender: FDA-Public Use
  Company Number: DE-JNJFOC-20040705331

PATIENT
  Sex: Female

DRUGS (2)
  1. DURAGESIC [Suspect]
     Route: 062
  2. PIROXICAM [Concomitant]
     Route: 030

REACTIONS (15)
  - ABSCESS [None]
  - APPLICATION SITE REACTION [None]
  - APPLICATION SITE SCAR [None]
  - CONTUSION [None]
  - ERYTHEMA [None]
  - HYPERSENSITIVITY [None]
  - INADEQUATE ANALGESIA [None]
  - INJURY [None]
  - MEDICATION ERROR [None]
  - NECROSIS [None]
  - OEDEMA PERIPHERAL [None]
  - PAIN [None]
  - PARAESTHESIA [None]
  - SKIN BLEEDING [None]
  - SKIN DISCOLOURATION [None]
